FAERS Safety Report 17426263 (Version 2)
Quarter: 2020Q1

REPORT INFORMATION
  Report Type: Spontaneous
  Country: JP (occurrence: JP)
  Receive Date: 20200218
  Receipt Date: 20200315
  Transmission Date: 20200409
  Serious: Yes (Death, Other)
  Sender: FDA-Public Use
  Company Number: JP-AMGEN-JPNSP2020025760

PATIENT
  Sex: Female

DRUGS (4)
  1. VECTIBIX [Suspect]
     Active Substance: PANITUMUMAB
     Indication: CARCINOID TUMOUR OF THE APPENDIX
     Dosage: UNK
     Route: 050
  2. FLUOROURACIL. [Suspect]
     Active Substance: FLUOROURACIL
     Indication: CARCINOID TUMOUR OF THE APPENDIX
     Dosage: UNK
     Route: 065
  3. CALCIUM LEVOFOLINATE [Suspect]
     Active Substance: LEVOLEUCOVORIN CALCIUM
     Indication: CARCINOID TUMOUR OF THE APPENDIX
     Dosage: UNK
     Route: 050
  4. OXALIPLATIN. [Suspect]
     Active Substance: OXALIPLATIN
     Indication: CARCINOID TUMOUR OF THE APPENDIX
     Dosage: UNK
     Route: 050

REACTIONS (4)
  - Ileus [Unknown]
  - Gastrointestinal perforation [Unknown]
  - Death [Fatal]
  - Off label use [Unknown]
